FAERS Safety Report 9247512 (Version 3)
Quarter: 2015Q2

REPORT INFORMATION
  Report Type: Report from Study
  Country: DE (occurrence: DE)
  Receive Date: 20130423
  Receipt Date: 20150605
  Transmission Date: 20150821
  Serious: Yes (Hospitalization)
  Sender: FDA-Public Use
  Company Number: PHHY2012DE115672

PATIENT
  Age: 73 Year
  Sex: Male
  Weight: 94 kg

DRUGS (8)
  1. ACETYLSALICYLIC ACID [Concomitant]
     Active Substance: ASPIRIN
     Indication: CORONARY ARTERY DISEASE
     Dosage: 100 MG, UNK
     Route: 065
     Dates: start: 201210
  2. MARCUMAR [Concomitant]
     Active Substance: PHENPROCOUMON
     Indication: PRODUCT USED FOR UNKNOWN INDICATION
     Route: 065
     Dates: start: 2005
  3. ILARIS [Suspect]
     Active Substance: CANAKINUMAB
     Indication: CRYOPYRIN ASSOCIATED PERIODIC SYNDROME
     Dosage: 300 MG, UNK
     Route: 058
     Dates: start: 20110329, end: 20120911
  4. BICALUTAMID [Concomitant]
     Active Substance: BICALUTAMIDE
     Indication: PROSTATE CANCER
     Route: 065
     Dates: start: 201203
  5. DELIX [Concomitant]
     Active Substance: RAMIPRIL
     Indication: PRODUCT USED FOR UNKNOWN INDICATION
     Dosage: 5 MG, QD
     Route: 065
  6. SIMVASTATIN. [Concomitant]
     Active Substance: SIMVASTATIN
     Indication: PRODUCT USED FOR UNKNOWN INDICATION
     Dosage: 20 MG, QD
     Route: 065
  7. PAMORELIN [Concomitant]
     Active Substance: TRIPTORELIN PAMOATE
     Indication: PROSTATE CANCER
     Route: 065
     Dates: start: 201206
  8. BELOC ZOK [Concomitant]
     Active Substance: METOPROLOL SUCCINATE
     Indication: PRODUCT USED FOR UNKNOWN INDICATION
     Dosage: 95 MG, QD
     Route: 065

REACTIONS (3)
  - Coronary artery disease [Recovered/Resolved]
  - Prostate cancer [Not Recovered/Not Resolved]
  - Angina pectoris [Recovered/Resolved]

NARRATIVE: CASE EVENT DATE: 20120329
